FAERS Safety Report 23097629 (Version 1)
Quarter: 2023Q4

REPORT INFORMATION
  Report Type: Spontaneous
  Country: US (occurrence: US)
  Receive Date: 20231023
  Receipt Date: 20231023
  Transmission Date: 20240110
  Serious: No
  Sender: FDA-Public Use
  Company Number: US-BAYER-2023A144350

PATIENT
  Age: 46 Year
  Sex: Female

DRUGS (2)
  1. CLARITIN REDITABS [Suspect]
     Active Substance: LORATADINE
     Indication: Hypersensitivity
     Dosage: ONE A DAY DOSE
     Route: 048
     Dates: start: 202309
  2. CLARITIN REDITABS [Suspect]
     Active Substance: LORATADINE
     Indication: Nasopharyngitis

REACTIONS (4)
  - Photophobia [Unknown]
  - Headache [Unknown]
  - Expired product administered [None]
  - Migraine [None]

NARRATIVE: CASE EVENT DATE: 20230901
